FAERS Safety Report 25797953 (Version 1)
Quarter: 2025Q3

REPORT INFORMATION
  Report Type: Spontaneous
  Country: GB (occurrence: GB)
  Receive Date: 20250912
  Receipt Date: 20250912
  Transmission Date: 20251020
  Serious: Yes (Other)
  Sender: SANDOZ
  Company Number: GB-SANDOZ-SDZ2024GB108176

PATIENT
  Age: 58 Year
  Sex: Female
  Weight: 84 kg

DRUGS (1)
  1. RANIBIZUMAB [Suspect]
     Active Substance: RANIBIZUMAB
     Indication: Product used for unknown indication
     Route: 065
     Dates: start: 20241104

REACTIONS (1)
  - Photophobia [Unknown]

NARRATIVE: CASE EVENT DATE: 20241104
